FAERS Safety Report 24368168 (Version 5)
Quarter: 2025Q1

REPORT INFORMATION
  Report Type: Spontaneous
  Country: PE (occurrence: PE)
  Receive Date: 20240926
  Receipt Date: 20250213
  Transmission Date: 20250408
  Serious: Yes (Hospitalization, Other)
  Sender: PFIZER
  Company Number: PE-PFIZER INC-PV202400112379

PATIENT
  Sex: Male

DRUGS (1)
  1. INLYTA [Suspect]
     Active Substance: AXITINIB
     Dosage: 5 MG, 2X/DAY (EVERY 12 HOURS)
     Route: 048
     Dates: end: 202412

REACTIONS (7)
  - Seizure [Unknown]
  - Intestinal obstruction [Unknown]
  - Brain oedema [Unknown]
  - Neoplasm progression [Unknown]
  - Diarrhoea [Unknown]
  - Hypertension [Unknown]
  - Haemorrhoids [Unknown]

NARRATIVE: CASE EVENT DATE: 20240101
